FAERS Safety Report 24366961 (Version 1)
Quarter: 2024Q3

REPORT INFORMATION
  Report Type: Spontaneous
  Country: US (occurrence: None)
  Receive Date: 20240926
  Receipt Date: 20240926
  Transmission Date: 20241017
  Serious: Yes (Hospitalization)
  Sender: Public
  Company Number: None

PATIENT
  Age: 20 Year
  Sex: Female

DRUGS (1)
  1. L-GLUTAMINE [Suspect]
     Active Substance: GLUTAMINE
     Indication: Sickle cell disease
     Dosage: 10 GRAM TWICE DAILY ORAL
     Route: 048
     Dates: start: 202407

REACTIONS (2)
  - Sickle cell anaemia with crisis [None]
  - Drug delivery system issue [None]

NARRATIVE: CASE EVENT DATE: 20240905
